FAERS Safety Report 13185451 (Version 1)
Quarter: 2017Q1

REPORT INFORMATION
  Report Type: Spontaneous
  Country: KR (occurrence: KR)
  Receive Date: 20170203
  Receipt Date: 20170203
  Transmission Date: 20170428
  Serious: Yes (Other)
  Sender: FDA-Public Use
  Company Number: PHHY2015KR153443

PATIENT
  Sex: Female
  Weight: 60 kg

DRUGS (3)
  1. CARBAMAZEPINE. [Suspect]
     Active Substance: CARBAMAZEPINE
     Indication: PARTIAL SEIZURES
     Route: 065
  2. OXCARBAZEPINE. [Suspect]
     Active Substance: OXCARBAZEPINE
     Indication: PARTIAL SEIZURES
     Route: 065
  3. PHENOBARBITAL. [Suspect]
     Active Substance: PHENOBARBITAL
     Indication: PARTIAL SEIZURES
     Route: 065

REACTIONS (6)
  - Lymphadenopathy [Recovered/Resolved]
  - Drug cross-reactivity [Unknown]
  - Rash [Unknown]
  - Dermatitis allergic [Recovered/Resolved]
  - Pyrexia [Recovered/Resolved]
  - Rash generalised [Recovered/Resolved]
